FAERS Safety Report 5927365-3 (Version None)
Quarter: 2008Q4

REPORT INFORMATION
  Report Type: 
  Country: None (occurrence: None)
  Receive Date: 20081020
  Receipt Date: 20081007
  Transmission Date: 20090506
  Serious: Yes (Other)
  Sender: FDA-Public Use
  Company Number: 230458K08USA

PATIENT
  Sex: Male

DRUGS (1)
  1. REBIF [Suspect]
     Indication: MULTIPLE SCLEROSIS
     Dosage: TRANSPLACENTAL
     Route: 064
     Dates: end: 20070326

REACTIONS (3)
  - INTRA-UTERINE DEATH [None]
  - MATERNAL DRUGS AFFECTING FOETUS [None]
  - PREMATURE SEPARATION OF PLACENTA [None]
